FAERS Safety Report 8571835-9 (Version None)
Quarter: 2012Q3

REPORT INFORMATION
  Report Type: 
  Country: None (occurrence: None)
  Receive Date: 20120806
  Receipt Date: 20120726
  Transmission Date: 20120928
  Serious: Yes (Death)
  Sender: FDA-Public Use
  Company Number: JP-BAYER-2011-012497

PATIENT
  Age: 74 Year
  Sex: Male

DRUGS (2)
  1. NEXAVAR [Suspect]
     Indication: HEPATIC NEOPLASM MALIGNANT
     Dosage: 400 MG, BID
     Route: 048
     Dates: start: 20110126
  2. NEXAVAR [Suspect]
     Dosage: DAILY DOSE: 400 MG
     Route: 048
     Dates: start: 20110202, end: 20120719

REACTIONS (2)
  - DEATH [None]
  - BLOOD CREATINE PHOSPHOKINASE INCREASED [None]
